FAERS Safety Report 12257954 (Version 1)
Quarter: 2016Q2

REPORT INFORMATION
  Report Type: Spontaneous
  Country: US (occurrence: US)
  Receive Date: 20160412
  Receipt Date: 20160412
  Transmission Date: 20160815
  Serious: Yes (Hospitalization)
  Sender: FDA-Public Use
  Company Number: US-GE HEALTHCARE MEDICAL DIAGNOSTICS-OMPQ-PR-1604L-0471

PATIENT
  Age: 60 Year
  Sex: Male

DRUGS (7)
  1. IOVERSOL [Suspect]
     Active Substance: IOVERSOL
     Indication: DIAGNOSTIC PROCEDURE
  2. IOVERSOL [Suspect]
     Active Substance: IOVERSOL
     Indication: AORTIC ANEURYSM
     Route: 042
  3. VISIPAQUE [Suspect]
     Active Substance: IODIXANOL
     Indication: AORTIC ANEURYSM
     Route: 042
  4. VISIPAQUE [Suspect]
     Active Substance: IODIXANOL
     Indication: THERAPEUTIC PROCEDURE
  5. OMNIPAQUE [Suspect]
     Active Substance: IOHEXOL
     Indication: AORTIC ANEURYSM
     Route: 042
  6. OMNIPAQUE [Suspect]
     Active Substance: IOHEXOL
     Indication: DIAGNOSTIC PROCEDURE
  7. VISIPAQUE [Suspect]
     Active Substance: IODIXANOL
     Indication: RENAL ARTERY STENT PLACEMENT

REACTIONS (3)
  - Renal failure [Recovered/Resolved]
  - Drug eruption [Recovered/Resolved]
  - Iodine overload [Recovered/Resolved]
